FAERS Safety Report 25218011 (Version 1)
Quarter: 2025Q2

REPORT INFORMATION
  Report Type: Spontaneous
  Country: JP (occurrence: JP)
  Receive Date: 20250421
  Receipt Date: 20250421
  Transmission Date: 20250716
  Serious: Yes (Other)
  Sender: NOVARTIS
  Company Number: JP-002147023-NVSJ2025JP003509

PATIENT
  Age: 76 Year
  Sex: Female

DRUGS (2)
  1. FEMARA [Suspect]
     Active Substance: LETROZOLE
     Indication: Product used for unknown indication
     Route: 048
  2. FEMARA [Suspect]
     Active Substance: LETROZOLE
     Route: 048
     Dates: start: 20250415

REACTIONS (1)
  - Arthropathy [Recovering/Resolving]
